FAERS Safety Report 5019978-0 (Version None)
Quarter: 2006Q2

REPORT INFORMATION
  Report Type: 
  Country: None (occurrence: None)
  Receive Date: 20060607
  Receipt Date: 20060502
  Transmission Date: 20061013
  Serious: Yes (Hospitalization)
  Sender: FDA-Public Use
  Company Number: HU-AMGEN-UK178337

PATIENT
  Sex: Male

DRUGS (11)
  1. ARANESP [Suspect]
     Indication: ANAEMIA OF MALIGNANT DISEASE
     Route: 058
     Dates: start: 20060123, end: 20060327
  2. FOLIC ACID [Concomitant]
     Route: 048
     Dates: start: 20060110
  3. ALLOPURINOL [Concomitant]
     Route: 048
     Dates: start: 20060115
  4. FAMOTIDINE [Concomitant]
     Route: 048
     Dates: start: 20060217
  5. RAMIPRIL [Concomitant]
     Route: 048
     Dates: start: 20060110, end: 20060220
  6. FLUDARABINE [Concomitant]
     Route: 065
     Dates: start: 20060503, end: 20060505
  7. CYCLOPHOSPHAMIDE [Concomitant]
     Route: 065
     Dates: start: 20051129, end: 20060505
  8. MITOXANTRONE [Concomitant]
     Route: 065
     Dates: start: 20060503, end: 20060503
  9. VINCRISTINE [Concomitant]
     Route: 065
     Dates: start: 20051129
  10. PREDNISOLONE [Concomitant]
     Route: 065
     Dates: start: 20051129
  11. SULFAMETHOXAZOLE [Concomitant]
     Route: 065

REACTIONS (1)
  - APLASIA PURE RED CELL [None]
